FAERS Safety Report 19195214 (Version 2)
Quarter: 2021Q2

REPORT INFORMATION
  Report Type: Spontaneous
  Country: RS (occurrence: RS)
  Receive Date: 20210429
  Receipt Date: 20210515
  Transmission Date: 20210717
  Serious: Yes (Life-Threatening, Hospitalization, Other)
  Sender: FDA-Public Use
  Company Number: RS-ACCORD-223595

PATIENT
  Age: 11 Year
  Sex: Female

DRUGS (6)
  1. LEVETIRACETAM. [Suspect]
     Active Substance: LEVETIRACETAM
     Indication: STATUS EPILEPTICUS
     Dosage: (SOLUTION FOR IV)
  2. LEVETIRACETAM. [Suspect]
     Active Substance: LEVETIRACETAM
     Indication: STATUS EPILEPTICUS
     Dosage: LOADING DOSE (SOLUTION FOR IV)
  3. DIAZEPAM. [Concomitant]
     Active Substance: DIAZEPAM
     Route: 054
  4. MIDAZOLAM. [Concomitant]
     Active Substance: MIDAZOLAM
     Route: 042
  5. CLOBAZAM. [Concomitant]
     Active Substance: CLOBAZAM
     Indication: STATUS EPILEPTICUS
  6. LEVETIRACETAM. [Suspect]
     Active Substance: LEVETIRACETAM
     Indication: STATUS EPILEPTICUS
     Route: 048

REACTIONS (1)
  - Sinus bradycardia [Recovered/Resolved]
